FAERS Safety Report 7737609-3 (Version None)
Quarter: 2011Q3

REPORT INFORMATION
  Report Type: 
  Country: None (occurrence: None)
  Receive Date: 20110908
  Receipt Date: 20110826
  Transmission Date: 20111222
  Serious: Yes (Other)
  Sender: FDA-Public Use
  Company Number: US-ELI_LILLY_AND_COMPANY-US201107006454

PATIENT
  Age: 68 Year
  Sex: Female

DRUGS (4)
  1. LANTUS [Concomitant]
     Dosage: UNK, BID
  2. HUMALOG [Suspect]
     Dosage: UNK, QID
  3. HUMALOG [Suspect]
     Dosage: UNK, QID
  4. HUMALOG [Suspect]
     Indication: DIABETES MELLITUS
     Dosage: UNK, QID
     Dates: start: 19960101

REACTIONS (6)
  - EYE DISORDER [None]
  - DRUG INEFFECTIVE [None]
  - WRONG TECHNIQUE IN DRUG USAGE PROCESS [None]
  - CORNEAL TRANSPLANT [None]
  - BLOOD GLUCOSE INCREASED [None]
  - CATARACT [None]
